FAERS Safety Report 23099487 (Version 1)
Quarter: 2023Q4

REPORT INFORMATION
  Report Type: Spontaneous
  Country: US (occurrence: US)
  Receive Date: 20231024
  Receipt Date: 20231024
  Transmission Date: 20240109
  Serious: Yes (Death, Other)
  Sender: FDA-Public Use
  Company Number: US-BRISTOL-MYERS SQUIBB COMPANY-2023-149975

PATIENT
  Age: 82 Year
  Sex: Male

DRUGS (1)
  1. OPDUALAG [Suspect]
     Active Substance: NIVOLUMAB\RELATLIMAB-RMBW
     Indication: Malignant melanoma
     Dosage: STRENGTH: 80/240 MG VIALS. ROUTE: INFUSION. DOSE: 480/160 MG AND FREQUENCY: 480/160 MG EVERY 4 WEEKS

REACTIONS (1)
  - Death [Fatal]
